FAERS Safety Report 5596278-1 (Version None)
Quarter: 2008Q1

REPORT INFORMATION
  Report Type: 
  Country: None (occurrence: None)
  Receive Date: 20080118
  Receipt Date: 20080109
  Transmission Date: 20080703
  Serious: Yes (Hospitalization)
  Sender: FDA-Public Use
  Company Number: PL-ABBOTT-08P-129-0432944-00

PATIENT
  Age: 45 Year
  Sex: Male
  Weight: 62 kg

DRUGS (3)
  1. KALETRA [Suspect]
     Indication: HIV INFECTION
     Dosage: 800MG
     Route: 048
     Dates: start: 20070720
  2. LAMIVUDINE [Concomitant]
     Indication: HIV INFECTION
  3. TENOFOVIR DISOPROXIL FUMARATE [Concomitant]
     Indication: HIV INFECTION

REACTIONS (5)
  - HYPERGLYCAEMIA [None]
  - LEUKOCYTOSIS [None]
  - NEUROPATHY PERIPHERAL [None]
  - PAIN IN EXTREMITY [None]
  - PYREXIA [None]
